FAERS Safety Report 5852539-X (Version None)
Quarter: 2008Q3

REPORT INFORMATION
  Report Type: 
  Country: None (occurrence: None)
  Receive Date: 20080821
  Receipt Date: 20080813
  Transmission Date: 20090109
  Serious: Yes (Disabling)
  Sender: FDA-Public Use
  Company Number: US-GILEAD-2008-0017759

PATIENT
  Sex: Female

DRUGS (12)
  1. LETAIRIS [Suspect]
     Indication: PULMONARY ARTERIAL HYPERTENSION
     Route: 048
     Dates: start: 20080725, end: 20080809
  2. BRIMONIDINE [Concomitant]
     Route: 047
  3. XALATAN [Concomitant]
     Route: 047
  4. SPIRIVA [Concomitant]
     Route: 055
  5. ALBUTEROL [Concomitant]
     Route: 055
  6. COLACE [Concomitant]
     Route: 048
  7. METOLAZONE [Concomitant]
     Route: 048
  8. LASIX [Concomitant]
  9. SPIRONOLACTONE [Concomitant]
  10. METOPROLOL TARTRATE [Concomitant]
  11. COUMADIN [Concomitant]
  12. REVATIO [Concomitant]

REACTIONS (5)
  - ANOREXIA [None]
  - CHILLS [None]
  - CONSTIPATION [None]
  - DIZZINESS [None]
  - DRY MOUTH [None]
